FAERS Safety Report 5682642-9 (Version None)
Quarter: 2008Q1

REPORT INFORMATION
  Report Type: 
  Country: None (occurrence: None)
  Receive Date: 20080327
  Receipt Date: 20080222
  Transmission Date: 20080703
  Serious: Yes (Disabling, Other)
  Sender: FDA-Public Use
  Company Number: US-BRISTOL-MYERS SQUIBB COMPANY-14058283

PATIENT
  Age: 46 Year
  Sex: Female

DRUGS (6)
  1. ORENCIA [Suspect]
     Indication: RHEUMATOID ARTHRITIS
     Dosage: DOSAGE:750MG IN 100ML.STARTED AT 25ML/HR FOR 5 MINS,50ML/HR FOR 10 MINS THEN STOPPED
     Route: 042
     Dates: start: 20080129, end: 20080129
  2. BENADRYL [Concomitant]
     Indication: PREMEDICATION
     Route: 042
     Dates: start: 20080129
  3. SOLU-MEDROL [Concomitant]
     Indication: PREMEDICATION
     Route: 042
     Dates: start: 20080129
  4. TYLENOL (CAPLET) [Concomitant]
     Indication: PREMEDICATION
     Dates: start: 20080212
  5. LORAZEPAM [Concomitant]
     Indication: PREMEDICATION
     Dates: start: 20080212
  6. PEPCID [Concomitant]
     Indication: PREMEDICATION
     Route: 041

REACTIONS (2)
  - INFUSION RELATED REACTION [None]
  - URTICARIA [None]
